FAERS Safety Report 4873275-2 (Version None)
Quarter: 2005Q4

REPORT INFORMATION
  Report Type: 
  Country: None (occurrence: None)
  Receive Date: 20051201
  Receipt Date: 20050803
  Transmission Date: 20060501
  Serious: No
  Sender: FDA-Public Use
  Company Number: 2005PV000873

PATIENT
  Age: 56 Year
  Sex: Female
  Weight: 204.1187 kg

DRUGS (11)
  1. BYETTA [Suspect]
     Indication: DIABETES MELLITUS NON-INSULIN-DEPENDENT
     Dosage: SEE IMAGE
     Route: 058
     Dates: start: 20050725, end: 20050821
  2. BYETTA [Suspect]
     Indication: DIABETES MELLITUS NON-INSULIN-DEPENDENT
     Dosage: SEE IMAGE
     Route: 058
     Dates: start: 20050822
  3. ACTOS [Concomitant]
  4. GLUCOVANCE [Concomitant]
  5. ZOCOR [Concomitant]
  6. SYNTHROID [Concomitant]
  7. DIOVAN [Concomitant]
  8. MAXZIDE [Concomitant]
  9. POTASSIUM [Concomitant]
  10. IRON [Concomitant]
  11. FLUID PILL [Concomitant]

REACTIONS (10)
  - ASTHENIA [None]
  - BLOOD GLUCOSE DECREASED [None]
  - BRONCHITIS [None]
  - DECREASED APPETITE [None]
  - DISORIENTATION [None]
  - FATIGUE [None]
  - GASTROENTERITIS VIRAL [None]
  - HYPERHIDROSIS [None]
  - NAUSEA [None]
  - VOMITING [None]
